FAERS Safety Report 9559659 (Version 1)
Quarter: 2013Q3

REPORT INFORMATION
  Report Type: Spontaneous
  Country: US (occurrence: US)
  Receive Date: 20130927
  Receipt Date: 20130927
  Transmission Date: 20140515
  Serious: Yes (Other)
  Sender: FDA-Public Use
  Company Number: US-JNJFOC-20130908636

PATIENT
  Age: 60 Year
  Sex: Male
  Weight: 83.92 kg

DRUGS (2)
  1. VISINE (UNSPECIFIED) [Suspect]
     Indication: POISONING
     Route: 048
     Dates: start: 20130910, end: 20130910
  2. LISINOPRIL [Concomitant]
     Indication: HYPERTENSION
     Dosage: LOWEST DOSE, SINCE 15 YEARS
     Route: 065

REACTIONS (7)
  - Feeling abnormal [Recovered/Resolved]
  - Toxicity to various agents [Recovered/Resolved]
  - Crime [Recovered/Resolved]
  - Dizziness [Recovered/Resolved]
  - Vomiting [Recovered/Resolved]
  - Abdominal distension [Recovered/Resolved]
  - Discomfort [Unknown]
